FAERS Safety Report 7981796-9 (Version None)
Quarter: 2011Q4

REPORT INFORMATION
  Report Type: 
  Country: None (occurrence: None)
  Receive Date: 20111215
  Receipt Date: 20111206
  Transmission Date: 20120403
  Serious: Yes (Death)
  Sender: FDA-Public Use
  Company Number: US-BAXTER-2011BH038212

PATIENT
  Age: 48 Year
  Sex: Male

DRUGS (1)
  1. DIANEAL [Suspect]
     Indication: PERITONEAL DIALYSIS
     Route: 033
     Dates: start: 20100101, end: 20111204

REACTIONS (6)
  - DEATH [None]
  - CEREBROVASCULAR ACCIDENT [None]
  - DIARRHOEA [None]
  - CHEST PAIN [None]
  - ABDOMINAL DISTENSION [None]
  - MUSCLE SPASMS [None]
